FAERS Safety Report 4873776-7 (Version None)
Quarter: 2006Q1

REPORT INFORMATION
  Report Type: 
  Country: None (occurrence: None)
  Receive Date: 20060104
  Receipt Date: 20051228
  Transmission Date: 20060701
  Serious: Yes (Life-Threatening, Hospitalization, Other)
  Sender: FDA-Public Use
  Company Number: US-2005-027960

PATIENT
  Age: 42 Year
  Sex: Male

DRUGS (6)
  1. LEUKINE [Suspect]
     Indication: CROHN'S DISEASE
     Dosage: 1.5 UG/KG, 1X/DAY, SUBCUTANEOUS
     Route: 058
     Dates: start: 20050311, end: 20051223
  2. ANTIBIOTICS [Concomitant]
  3. DEMEROL [Concomitant]
  4. VERSED [Concomitant]
  5. UNKNOWN BOWEL PREPARATION [Concomitant]
  6. PREDNISONE [Concomitant]

REACTIONS (1)
  - MYOCARDIAL INFARCTION [None]
